FAERS Safety Report 20056535 (Version 2)
Quarter: 2021Q4

REPORT INFORMATION
  Report Type: Spontaneous
  Country: US (occurrence: US)
  Receive Date: 20211111
  Receipt Date: 20211201
  Transmission Date: 20220303
  Serious: No
  Sender: FDA-Public Use
  Company Number: US-APELLIS-00982

PATIENT
  Age: 62 Year
  Sex: Female

DRUGS (3)
  1. EMPAVELI [Suspect]
     Active Substance: PEGCETACOPLAN
     Indication: Paroxysmal nocturnal haemoglobinuria
     Route: 058
     Dates: start: 20211004
  2. 1325608 (GLOBALC3Mar21): Folic acid [Concomitant]
     Indication: Product used for unknown indication
  3. 3058580 (GLOBALC3Mar21): Jadenu [Concomitant]
     Indication: Product used for unknown indication

REACTIONS (11)
  - Back pain [Unknown]
  - Abdominal pain upper [Recovered/Resolved]
  - Hot flush [Recovered/Resolved]
  - Headache [Recovered/Resolved]
  - Neck pain [Recovered/Resolved]
  - Eye swelling [Recovered/Resolved]
  - Pruritus [Recovered/Resolved]
  - Paraesthesia [Unknown]
  - Ocular hyperaemia [Recovered/Resolved]
  - Infusion site swelling [Unknown]
  - Infusion site discolouration [Unknown]

NARRATIVE: CASE EVENT DATE: 20211004
